FAERS Safety Report 5832006-X (Version None)
Quarter: 2008Q3

REPORT INFORMATION
  Report Type: 
  Country: None (occurrence: None)
  Receive Date: 20080804
  Receipt Date: 20080724
  Transmission Date: 20090109
  Serious: Yes (Hospitalization, Other)
  Sender: FDA-Public Use
  Company Number: GB-JNJFOC-20080706043

PATIENT
  Age: 57 Year
  Sex: Male
  Weight: 125 kg

DRUGS (8)
  1. REMICADE [Suspect]
     Indication: RHEUMATOID ARTHRITIS
     Route: 042
  2. PREDNISOLONE [Concomitant]
  3. HYDROCORTISONE [Concomitant]
  4. BROMOCRYPTINE [Concomitant]
  5. FOSAMAX [Concomitant]
  6. LEVOTHYROXINE SODIUM [Concomitant]
  7. VOLTAREN [Concomitant]
  8. METHOTREXATE [Concomitant]

REACTIONS (2)
  - CHEST PAIN [None]
  - CORONARY ARTERY DISEASE [None]
